FAERS Safety Report 18012747 (Version 5)
Quarter: 2020Q3

REPORT INFORMATION
  Report Type: Spontaneous
  Country: JP (occurrence: JP)
  Receive Date: 20200713
  Receipt Date: 20200923
  Transmission Date: 20201103
  Serious: Yes (Death, Life-Threatening, Hospitalization, Other)
  Sender: FDA-Public Use
  Company Number: JP-ASTELLAS-2020JP009925

PATIENT
  Age: 66 Year
  Sex: Female
  Weight: 43 kg

DRUGS (7)
  1. CELLCEPT [Suspect]
     Active Substance: MYCOPHENOLATE MOFETIL\MYCOPHENOLATE MOFETIL HYDROCHLORIDE
     Indication: SYSTEMIC LUPUS ERYTHEMATOSUS
     Route: 048
     Dates: start: 20181022, end: 20190116
  2. IVERMECTIN. [Concomitant]
     Active Substance: IVERMECTIN
     Indication: STRONGYLOIDIASIS
     Dosage: UNK UNK, UNKNOWN FREQ.
     Route: 042
     Dates: start: 20190120, end: 20190120
  3. IVERMECTIN. [Concomitant]
     Active Substance: IVERMECTIN
     Route: 042
     Dates: start: 20190130
  4. PREDONINE [PREDNISOLONE SODIUM SUCCINATE] [Suspect]
     Active Substance: PREDNISOLONE SODIUM SUCCINATE
     Indication: SYSTEMIC LUPUS ERYTHEMATOSUS
     Route: 042
     Dates: start: 20190116, end: 20190223
  5. DENOSINE [GANCICLOVIR] [Concomitant]
     Active Substance: GANCICLOVIR
     Indication: CYTOMEGALOVIRUS ENTEROCOLITIS
     Dosage: UNK UNK, UNKNOWN FREQ.
     Route: 065
     Dates: start: 20190116
  6. PROGRAF [Suspect]
     Active Substance: TACROLIMUS
     Indication: SYSTEMIC LUPUS ERYTHEMATOSUS
     Route: 048
     Dates: start: 20181027, end: 20190116
  7. PREDNIN [Suspect]
     Active Substance: PREDNISOLONE SODIUM PHOSPHATE
     Indication: SYSTEMIC LUPUS ERYTHEMATOSUS
     Dosage: 50 MG/DAY, THRICE DAILY
     Route: 048
     Dates: start: 20181022, end: 20190116

REACTIONS (2)
  - Strongyloidiasis [Fatal]
  - Cytomegalovirus enterocolitis [Recovering/Resolving]

NARRATIVE: CASE EVENT DATE: 20190116
